FAERS Safety Report 23090760 (Version 1)
Quarter: 2023Q4

REPORT INFORMATION
  Report Type: Spontaneous
  Country: US (occurrence: US)
  Receive Date: 20231020
  Receipt Date: 20231020
  Transmission Date: 20240109
  Serious: Yes (Hospitalization, Other)
  Sender: FDA-Public Use
  Company Number: US-SUN PHARMACEUTICAL INDUSTRIES LTD-2023R1-413566

PATIENT
  Age: 60 Year
  Sex: Male

DRUGS (1)
  1. QUETIAPINE [Suspect]
     Active Substance: QUETIAPINE
     Indication: Schizoaffective disorder
     Dosage: UNK
     Route: 065

REACTIONS (4)
  - Chronic obstructive pulmonary disease [Unknown]
  - Pneumonia [Unknown]
  - Bordetella infection [Unknown]
  - Beta haemolytic streptococcal infection [Unknown]
